FAERS Safety Report 7990731-9 (Version None)
Quarter: 2011Q4

REPORT INFORMATION
  Report Type: 
  Country: None (occurrence: None)
  Receive Date: 20111219
  Receipt Date: 20111219
  Transmission Date: 20120403
  Serious: No
  Sender: FDA-Public Use
  Company Number: None

PATIENT
  Sex: Male
  Weight: 83.914 kg

DRUGS (1)
  1. PROPECIA [Suspect]
     Indication: ALOPECIA
     Dosage: 1MG
     Route: 048

REACTIONS (14)
  - DEPRESSION [None]
  - SUICIDAL IDEATION [None]
  - BLOOD ZINC DECREASED [None]
  - ERECTILE DYSFUNCTION [None]
  - PROCTITIS [None]
  - ANXIETY [None]
  - INFLAMMATION [None]
  - HYPOTHYROIDISM [None]
  - HYPOAESTHESIA [None]
  - NERVE INJURY [None]
  - CARPAL TUNNEL SYNDROME [None]
  - EPIDIDYMITIS [None]
  - BLOOD TESTOSTERONE DECREASED [None]
  - VITAMIN D DECREASED [None]
